FAERS Safety Report 6985676-7 (Version None)
Quarter: 2010Q3

REPORT INFORMATION
  Report Type: 
  Country: None (occurrence: None)
  Receive Date: 20100915
  Receipt Date: 20100908
  Transmission Date: 20110219
  Serious: Yes (Other)
  Sender: FDA-Public Use
  Company Number: US-WYE-H17398810

PATIENT
  Sex: Female

DRUGS (2)
  1. EFFEXOR XR [Suspect]
     Indication: ANXIETY
     Dosage: 75 MG, FREQUENCY NOT SPECIFIED
  2. EFFEXOR XR [Suspect]
     Indication: DEPRESSION

REACTIONS (2)
  - DRUG INTOLERANCE [None]
  - SUICIDAL IDEATION [None]
